FAERS Safety Report 9548161 (Version 1)
Quarter: 2013Q2

REPORT INFORMATION
  Report Type: Spontaneous
  Country: US (occurrence: None)
  Receive Date: 20130627
  Receipt Date: 20130627
  Transmission Date: 20140414
  Serious: Yes (Other)
  Sender: FDA-Public Use
  Company Number: 1000045000

PATIENT
  Age: 81 Year
  Sex: Female

DRUGS (8)
  1. LINZESS [Suspect]
     Indication: IRRITABLE BOWEL SYNDROME
     Route: 048
     Dates: start: 20130502, end: 20130512
  2. VIIBRYD (VILAZODONE) [Concomitant]
  3. VALSARTAN [Concomitant]
  4. FUROSEMIDE [Concomitant]
  5. LIPITOR (ATORVASTATIN CALCIUM) [Concomitant]
  6. PLAVIX (CLOPIDOGREL BISULFATE) [Concomitant]
  7. NEXIUM [Concomitant]
  8. GLIMEPIRIDE [Concomitant]

REACTIONS (4)
  - Abdominal pain upper [None]
  - Nausea [None]
  - Abdominal distension [None]
  - Diarrhoea [None]
